FAERS Safety Report 25224583 (Version 1)
Quarter: 2025Q2

REPORT INFORMATION
  Report Type: Spontaneous
  Country: US (occurrence: None)
  Receive Date: 20250422
  Receipt Date: 20250422
  Transmission Date: 20250716
  Serious: Yes (unspecified)
  Sender: FDA-CTU
  Company Number: None

PATIENT
  Age: 54 Year
  Sex: Female
  Weight: 64.35 kg

DRUGS (6)
  1. ESTRADIOL\TESTOSTERONE [Suspect]
     Active Substance: ESTRADIOL\TESTOSTERONE
     Indication: Hormone replacement therapy
     Route: 050
  2. ALLEGRA [Concomitant]
     Active Substance: FEXOFENADINE HYDROCHLORIDE
  3. AMLODIPINE [Concomitant]
     Active Substance: AMLODIPINE BESYLATE
  4. evexipel pellets (6 of estrogen, 87.5 of testosterone) [Concomitant]
  5. COLLAGEN [Concomitant]
     Active Substance: COLLAGEN
  6. VITAMIN D [Concomitant]
     Active Substance: VITAMIN D NOS

REACTIONS (13)
  - Feeling abnormal [None]
  - Lipoatrophy [None]
  - Cerebrospinal fluid leakage [None]
  - Eye swelling [None]
  - Eye pain [None]
  - Blood glucose increased [None]
  - Product formulation issue [None]
  - Premature ageing [None]
  - Muscular weakness [None]
  - Urticaria [None]
  - Rash [None]
  - Lip swelling [None]
  - Alopecia [None]

NARRATIVE: CASE EVENT DATE: 20250218
